FAERS Safety Report 6977560-X (Version None)
Quarter: 2010Q3

REPORT INFORMATION
  Report Type: 
  Country: None (occurrence: None)
  Receive Date: 20100912
  Receipt Date: 20100831
  Transmission Date: 20110219
  Serious: Yes (Hospitalization, Other)
  Sender: FDA-Public Use
  Company Number: GB-MERCK-1009USA00124

PATIENT
  Age: 60 Year
  Sex: Male

DRUGS (11)
  1. DECADRON [Suspect]
     Indication: RECTAL CANCER
     Route: 065
  2. TEGAFUR AND URACIL [Suspect]
     Indication: RECTAL CANCER
     Route: 065
  3. ASPIRIN [Concomitant]
     Route: 065
  4. ATORVASTATIN [Concomitant]
     Route: 065
  5. BISOPROLOL [Concomitant]
     Route: 065
  6. CLOPIDOGREL BISULFATE [Concomitant]
     Route: 065
  7. DOMPERIDONE [Concomitant]
     Route: 065
  8. DOTHIEPIN HYDROCHLORIDE [Concomitant]
     Route: 065
  9. FOLIC ACID [Concomitant]
     Route: 065
  10. ISOSORBIDE MONONITRATE [Concomitant]
     Route: 065
  11. RAMIPRIL [Concomitant]
     Route: 065

REACTIONS (3)
  - ANGINA PECTORIS [None]
  - HYPERGLYCAEMIA [None]
  - ISCHAEMIA [None]
